FAERS Safety Report 10184949 (Version 1)
Quarter: 2014Q2

REPORT INFORMATION
  Report Type: Spontaneous
  Country: US (occurrence: None)
  Receive Date: 20140520
  Receipt Date: 20140520
  Transmission Date: 20141212
  Serious: No
  Sender: FDA-Public Use
  Company Number: None

PATIENT
  Age: 46 Year
  Sex: Female
  Weight: 71.22 kg

DRUGS (1)
  1. MOVIPREP [Suspect]
     Indication: COLONOSCOPY
     Dosage: POUCH FOUR TIMES DAILY TAKEN BY MOUTH
     Route: 048
     Dates: start: 20140423, end: 20140424

REACTIONS (6)
  - Nausea [None]
  - Anorectal disorder [None]
  - Muscle spasms [None]
  - Abdominal pain upper [None]
  - Chills [None]
  - Migraine [None]
